FAERS Safety Report 21300465 (Version 2)
Quarter: 2022Q4

REPORT INFORMATION
  Report Type: Spontaneous
  Country: US (occurrence: US)
  Receive Date: 20220907
  Receipt Date: 20221025
  Transmission Date: 20230113
  Serious: Yes (Other)
  Sender: FDA-Public Use
  Company Number: US-CELGENE-163-21880-12061881

PATIENT
  Age: 1 Day

DRUGS (1)
  1. REVLIMID [Suspect]
     Active Substance: LENALIDOMIDE
     Indication: Product used for unknown indication
     Dosage: DRUG TAKEN BY FATHER ORALLY
     Route: 065
     Dates: start: 20070130

REACTIONS (2)
  - Neonatal disorder [Unknown]
  - Paternal exposure timing unspecified [Unknown]
